FAERS Safety Report 18557381 (Version 2)
Quarter: 2021Q1

REPORT INFORMATION
  Report Type: Report from Study
  Country: None (occurrence: US)
  Receive Date: 20201129
  Receipt Date: 20210222
  Transmission Date: 20210419
  Serious: Yes (Other)
  Sender: FDA-Public Use
  Company Number: US-ABBVIE-20K-163-3667206-00

PATIENT
  Sex: Female

DRUGS (2)
  1. VENCLEXTA [Suspect]
     Active Substance: VENETOCLAX
     Route: 048
  2. VENCLEXTA [Suspect]
     Active Substance: VENETOCLAX
     Indication: CHRONIC LYMPHOCYTIC LEUKAEMIA
     Route: 048
     Dates: start: 202004

REACTIONS (6)
  - Skin cancer [Unknown]
  - Hepatic enzyme abnormal [Unknown]
  - Arthralgia [Unknown]
  - Platelet count decreased [Unknown]
  - Infection [Recovered/Resolved]
  - Neutropenia [Unknown]

NARRATIVE: CASE EVENT DATE: 2020
